FAERS Safety Report 8203167-2 (Version None)
Quarter: 2012Q1

REPORT INFORMATION
  Report Type: 
  Country: None (occurrence: None)
  Receive Date: 20120312
  Receipt Date: 20120305
  Transmission Date: 20120608
  Serious: Yes (Other)
  Sender: FDA-Public Use
  Company Number: CHPA2012US002446

PATIENT
  Age: 67 Year
  Sex: Female

DRUGS (2)
  1. EXCEDRIN EXTRA STRENGTH TABLETS [Suspect]
     Indication: ARTHRALGIA
     Dosage: 2 DF, QD
     Route: 048
     Dates: start: 20111101, end: 20120117
  2. CORTISONE ACETATE [Suspect]
     Dosage: UNK
     Dates: start: 20120111, end: 20120111

REACTIONS (11)
  - RENAL PAIN [None]
  - INFLUENZA LIKE ILLNESS [None]
  - MIGRAINE [None]
  - DISORIENTATION [None]
  - BEDRIDDEN [None]
  - VISION BLURRED [None]
  - NAUSEA [None]
  - FATIGUE [None]
  - ABDOMINAL DISCOMFORT [None]
  - HYPERHIDROSIS [None]
  - INCORRECT DRUG ADMINISTRATION DURATION [None]
